FAERS Safety Report 10553709 (Version 1)
Quarter: 2014Q4

REPORT INFORMATION
  Report Type: Spontaneous
  Country: US (occurrence: None)
  Receive Date: 20141023
  Receipt Date: 20141023
  Transmission Date: 20150529
  Serious: No
  Sender: FDA-Public Use
  Company Number: AP356-01065-SPO-US

PATIENT
  Age: 64 Year
  Sex: Female
  Weight: 79.4 kg

DRUGS (4)
  1. METFORMIN [Concomitant]
     Active Substance: METFORMIN HYDROCHLORIDE
  2. HORMONE REPLACEMENT THERAPY [Concomitant]
     Active Substance: UNSPECIFIED INGREDIENT
  3. BELVIQ [Suspect]
     Active Substance: LORCASERIN HYDROCHLORIDE
     Indication: WEIGHT DECREASED
     Route: 048
     Dates: start: 201407, end: 20140718
  4. LEVEMIR INSULIN (INSULIN DETEMIR) [Concomitant]

REACTIONS (2)
  - Hunger [None]
  - Nausea [None]

NARRATIVE: CASE EVENT DATE: 201407
